FAERS Safety Report 4558483-2 (Version None)
Quarter: 2005Q1

REPORT INFORMATION
  Report Type: 
  Country: None (occurrence: None)
  Receive Date: 20050121
  Receipt Date: 20050114
  Transmission Date: 20050727
  Serious: Yes (Hospitalization, Other)
  Sender: FDA-Public Use
  Company Number: PHEH2005US01064

PATIENT
  Age: 60 Year
  Sex: Female

DRUGS (1)
  1. FORADIL [Suspect]
     Dosage: 12 UG, UNK

REACTIONS (3)
  - BLINDNESS UNILATERAL [None]
  - SINUSITIS [None]
  - TOLOSA-HUNT SYNDROME [None]
